FAERS Safety Report 5725886-X (Version None)
Quarter: 2008Q2

REPORT INFORMATION
  Report Type: 
  Country: None (occurrence: None)
  Receive Date: 20080502
  Receipt Date: 20080424
  Transmission Date: 20081010
  Serious: Yes (Hospitalization)
  Sender: FDA-Public Use
  Company Number: JP-RANBAXY-2008RR-14707

PATIENT

DRUGS (2)
  1. ACETAMINOPHEN [Suspect]
     Indication: PYREXIA
     Dosage: 600 MG, UNK
  2. CEFDINIR [Suspect]
     Indication: PYREXIA
     Dosage: 300 MG, UNK

REACTIONS (2)
  - ERYTHEMA MULTIFORME [None]
  - VANISHING BILE DUCT SYNDROME [None]
